APPROVED DRUG PRODUCT: DRYTEC
Active Ingredient: TECHNETIUM TC-99M SODIUM PERTECHNETATE GENERATOR
Strength: 68-2703mCi/GENERATOR
Dosage Form/Route: SOLUTION;INTRAVENOUS, ORAL
Application: N017693 | Product #002
Applicant: GE HEALTHCARE
Approved: Dec 13, 2013 | RLD: Yes | RS: No | Type: DISCN